FAERS Safety Report 7081888-5 (Version None)
Quarter: 2010Q4

REPORT INFORMATION
  Report Type: 
  Country: None (occurrence: None)
  Receive Date: 20101103
  Receipt Date: 20101025
  Transmission Date: 20110411
  Serious: Yes (Hospitalization, Other)
  Sender: FDA-Public Use
  Company Number: US-CELGENEUS-163-21880-10061996

PATIENT
  Sex: Female

DRUGS (1)
  1. REVLIMID [Suspect]
     Indication: MULTIPLE MYELOMA
     Route: 048
     Dates: start: 20080829, end: 20100501

REACTIONS (5)
  - ALOPECIA [None]
  - DISEASE PROGRESSION [None]
  - FLUID RETENTION [None]
  - GENERALISED OEDEMA [None]
  - PAIN IN EXTREMITY [None]
